FAERS Safety Report 8848314 (Version 1)
Quarter: 2012Q4

REPORT INFORMATION
  Report Type: 
  Country: US (occurrence: US)
  Receive Date: 20121019
  Receipt Date: 20121019
  Transmission Date: 20130627
  Serious: Yes (Hospitalization)
  Sender: FDA-Public Use
  Company Number: US-MYLANLABS-2012S1021006

PATIENT
  Age: 25 Year
  Sex: Male

DRUGS (12)
  1. METHOTREXATE [Suspect]
     Indication: SPINDLE CELL SARCOMA
     Dosage: 12 g/m2 (total dose 20g)
     Route: 042
  2. OMEPRAZOLE [Interacting]
     Indication: PROPHYLAXIS AGAINST GASTROINTESTINAL ULCER
     Route: 065
  3. CISPLATIN [Concomitant]
     Indication: SPINDLE CELL SARCOMA
     Route: 065
  4. DOXORUBICIN [Concomitant]
     Indication: SPINDLE CELL SARCOMA
     Route: 065
  5. FOLINIC ACID [Concomitant]
     Indication: SPINDLE CELL SARCOMA
     Route: 042
  6. FOLINIC ACID [Concomitant]
     Indication: SPINDLE CELL SARCOMA
     Route: 048
  7. FOLINIC ACID [Concomitant]
     Indication: SPINDLE CELL SARCOMA
     Route: 042
  8. FOLINIC ACID [Concomitant]
     Indication: SPINDLE CELL SARCOMA
     Route: 042
  9. DEXAMETHASONE [Concomitant]
     Indication: TENSION HEADACHE
     Route: 065
  10. HYDROCODONE [Concomitant]
     Route: 065
  11. PROCHLORPERAZINE [Concomitant]
     Route: 065
  12. LANSOPRAZOLE [Concomitant]
     Indication: PROPHYLAXIS AGAINST GASTROINTESTINAL ULCER
     Route: 065

REACTIONS (7)
  - Toxicity to various agents [Recovered/Resolved]
  - Grand mal convulsion [Recovered/Resolved]
  - Renal failure acute [Recovered/Resolved]
  - Mucosal inflammation [Unknown]
  - Thrombocytopenia [Unknown]
  - Drug interaction [Recovered/Resolved]
  - Chemotherapeutic drug level increased [Recovered/Resolved]
